FAERS Safety Report 15275272 (Version 1)
Quarter: 2018Q3

REPORT INFORMATION
  Report Type: Spontaneous
  Country: US (occurrence: US)
  Receive Date: 20180727
  Receipt Date: 20180727
  Transmission Date: 20181010
  Serious: Yes (Death)
  Sender: FDA-Public Use
  Company Number: None

PATIENT
  Age: 88 Year
  Sex: Female

DRUGS (3)
  1. COLISTIMETHATE [Concomitant]
     Active Substance: COLISTIMETHATE SODIUM
  2. DAPTOMYCIN. [Suspect]
     Active Substance: DAPTOMYCIN
     Indication: ALPHA HAEMOLYTIC STREPTOCOCCAL INFECTION
     Dosage: ?          OTHER FREQUENCY:EVERU 48 HOURS;?
     Route: 042
     Dates: start: 20180110
  3. CASPOFUNGIN [Concomitant]
     Active Substance: CASPOFUNGIN

REACTIONS (5)
  - Cerebrovascular accident [None]
  - Therapy change [None]
  - Blood creatine phosphokinase increased [None]
  - Septic embolus [None]
  - Dysphagia [None]

NARRATIVE: CASE EVENT DATE: 20180124
